FAERS Safety Report 20577771 (Version 4)
Quarter: 2022Q1

REPORT INFORMATION
  Report Type: Report from Study
  Country: GT (occurrence: GT)
  Receive Date: 20220310
  Receipt Date: 20220331
  Transmission Date: 20220424
  Serious: Yes (Death)
  Sender: FDA-Public Use
  Company Number: GT-NOVARTISPH-NVSC2022GT055896

PATIENT
  Age: 77 Year
  Sex: Male

DRUGS (3)
  1. METFORMIN HYDROCHLORIDE\VILDAGLIPTIN [Suspect]
     Active Substance: METFORMIN HYDROCHLORIDE\VILDAGLIPTIN
     Indication: Diabetes mellitus
     Dosage: 1 DOSAGE FORM, QD (7 YEAR APPROXIMATELY)
     Route: 065
  2. ARAVA [Concomitant]
     Active Substance: LEFLUNOMIDE
     Indication: Rheumatoid arthritis
     Dosage: 20 MG, QD  (STARED 17 YEARS AGO)
     Route: 065
  3. PLAQUINOL [Concomitant]
     Active Substance: HYDROXYCHLOROQUINE SULFATE
     Indication: Rheumatoid arthritis
     Dosage: UNK (EVERY 8 DAY) (17 YEARS AGO)
     Route: 065

REACTIONS (3)
  - Gastric cancer [Fatal]
  - Musculoskeletal chest pain [Fatal]
  - Abdominal pain [Unknown]

NARRATIVE: CASE EVENT DATE: 20170501
